FAERS Safety Report 4667244-5 (Version None)
Quarter: 2005Q2

REPORT INFORMATION
  Report Type: 
  Country: None (occurrence: None)
  Receive Date: 20050520
  Receipt Date: 20040804
  Transmission Date: 20051028
  Serious: Yes (Other)
  Sender: FDA-Public Use
  Company Number: PHEH2004US08538

PATIENT
  Age: 86 Year
  Sex: Female

DRUGS (4)
  1. ZOMETA [Suspect]
     Indication: MULTIPLE MYELOMA
     Dosage: 4 MG MONTHLY
     Route: 042
     Dates: start: 20030404, end: 20040308
  2. PREDNISONE TAB [Concomitant]
     Indication: MULTIPLE MYELOMA
     Dosage: 100 MG QD X 4 DAYS Q 30 DAYS
     Dates: start: 20030404, end: 20030408
  3. PREDNISONE TAB [Concomitant]
     Dosage: 100 MG QD X 4 DAYS/MONTH
     Dates: start: 20030508, end: 20040308
  4. MELPHALAN [Concomitant]
     Indication: MULTIPLE MYELOMA
     Dosage: 12 MG QD X 4 DAYS/MONTH
     Dates: start: 20030404, end: 20040308

REACTIONS (3)
  - GINGIVAL EROSION [None]
  - OSTEONECROSIS [None]
  - TOOTH LOSS [None]
